FAERS Safety Report 14656764 (Version 3)
Quarter: 2020Q1

REPORT INFORMATION
  Report Type: Spontaneous
  Country: US (occurrence: US)
  Receive Date: 20180319
  Receipt Date: 20200131
  Transmission Date: 20200409
  Serious: Yes (Other)
  Sender: FDA-Public Use
  Company Number: US-SA-2017SA059361

PATIENT
  Age: 65 Year
  Sex: Female
  Weight: 40 kg

DRUGS (3)
  1. CELEBREX [Concomitant]
     Active Substance: CELECOXIB
     Dosage: UNK
     Route: 065
  2. NASACORT ALLERGY 24HR [Suspect]
     Active Substance: TRIAMCINOLONE ACETONIDE
     Dosage: EVERY NIGHT 1 PUFF
     Route: 065
  3. PROLIA [Concomitant]
     Active Substance: DENOSUMAB
     Indication: OSTEOPOROSIS
     Dosage: UNK
     Route: 065

REACTIONS (10)
  - Eye pain [Unknown]
  - Rhinalgia [Unknown]
  - Neuralgia [Unknown]
  - Headache [Unknown]
  - Product taste abnormal [Unknown]
  - Intercepted product administration error [Unknown]
  - Dementia Alzheimer^s type [Unknown]
  - Dysgeusia [Unknown]
  - Fatigue [Unknown]
  - Nasopharyngitis [Unknown]
